FAERS Safety Report 5416165-9 (Version None)
Quarter: 2007Q3

REPORT INFORMATION
  Report Type: 
  Country: None (occurrence: None)
  Receive Date: 20070718
  Receipt Date: 20060717
  Transmission Date: 20080115
  Serious: Yes (Disabling, Other)
  Sender: FDA-Public Use
  Company Number: 2006006406

PATIENT
  Age: 48 Year
  Sex: Female
  Weight: 106.5953 kg

DRUGS (2)
  1. CELEBREX [Suspect]
     Indication: ARTHRALGIA
     Dosage: (100 MG, DAY)
     Dates: start: 19990811
  2. VIOXX [Suspect]
     Indication: ARTHRALGIA
     Dates: start: 19990101

REACTIONS (2)
  - DEPRESSION [None]
  - MYOCARDIAL INFARCTION [None]
